FAERS Safety Report 6626300-2 (Version None)
Quarter: 2010Q1

REPORT INFORMATION
  Report Type: 
  Country: None (occurrence: None)
  Receive Date: 20100310
  Receipt Date: 20090428
  Transmission Date: 20100710
  Serious: No
  Sender: FDA-Public Use
  Company Number: US-ABBOTT-09P-163-0570821-00

PATIENT
  Sex: Female

DRUGS (2)
  1. LUPRON DEPOT [Suspect]
     Indication: UTERINE LEIOMYOMA
     Dosage: 2 INJECTION RECEIVED
     Route: 050
  2. LUPRON DEPOT [Suspect]
     Indication: OVARIAN CYST

REACTIONS (1)
  - MENORRHAGIA [None]
